FAERS Safety Report 23369105 (Version 2)
Quarter: 2024Q1

REPORT INFORMATION
  Report Type: Spontaneous
  Country: US (occurrence: US)
  Receive Date: 20240105
  Receipt Date: 20240219
  Transmission Date: 20240409
  Serious: No
  Sender: FDA-Public Use
  Company Number: US-GSKCCFUS-Case-01894496_AE-105685

PATIENT
  Sex: Male

DRUGS (1)
  1. ANORO ELLIPTA [Suspect]
     Active Substance: UMECLIDINIUM BROMIDE\VILANTEROL TRIFENATATE
     Indication: Product used for unknown indication
     Dosage: UNK, 62.5/25MCG

REACTIONS (4)
  - Nasopharyngitis [Recovered/Resolved]
  - Illness [Unknown]
  - Wrong technique in device usage process [Unknown]
  - Product complaint [Unknown]
